FAERS Safety Report 18901102 (Version 1)
Quarter: 2021Q1

REPORT INFORMATION
  Report Type: Spontaneous
  Country: US (occurrence: US)
  Receive Date: 20210216
  Receipt Date: 20210216
  Transmission Date: 20210420
  Serious: Yes (Hospitalization)
  Sender: FDA-Public Use
  Company Number: US-SA-2021SA048263

PATIENT
  Sex: Female

DRUGS (9)
  1. AUBAGIO [Suspect]
     Active Substance: TERIFLUNOMIDE
     Dosage: UNK
     Route: 065
  2. ESCITALOPRAM [Concomitant]
     Active Substance: ESCITALOPRAM OXALATE
     Dosage: 20MG
     Route: 065
  3. IMIPRAMINE [Concomitant]
     Active Substance: IMIPRAMINE
     Dosage: 300 MG
     Route: 065
  4. POLYETHYLENE [Concomitant]
     Active Substance: HIGH DENSITY POLYETHYLENE
     Dosage: UNK
     Route: 065
  5. ALBUTEROL [SALBUTAMOL] [Concomitant]
     Active Substance: ALBUTEROL
     Dosage: 4MG
     Route: 065
  6. ZINC OXIDE. [Concomitant]
     Active Substance: ZINC OXIDE
     Dosage: UNK
  7. BACLOFEN. [Concomitant]
     Active Substance: BACLOFEN
     Dosage: 20MG
     Route: 065
  8. CHLORHEXIDIN [CHLORHEXIDINE] [Concomitant]
     Dosage: UNK
     Route: 065
  9. B [VITAMIN B NOS] [Concomitant]
     Dosage: UNK
     Route: 065

REACTIONS (1)
  - Dysstasia [Unknown]
